FAERS Safety Report 17909815 (Version 1)
Quarter: 2020Q2

REPORT INFORMATION
  Report Type: Spontaneous
  Country: US (occurrence: US)
  Receive Date: 20200618
  Receipt Date: 20200618
  Transmission Date: 20200714
  Serious: Yes (Hospitalization, Other)
  Sender: FDA-Public Use
  Company Number: US-SUN PHARMACEUTICAL INDUSTRIES LTD-2020R1-249804

PATIENT
  Age: 36 Year
  Sex: Male

DRUGS (2)
  1. CARBAMAZEPINE. [Suspect]
     Active Substance: CARBAMAZEPINE
     Dosage: UNK
     Route: 065
  2. DIVALPROEX ER [Suspect]
     Active Substance: DIVALPROEX SODIUM
     Indication: EPILEPSY
     Dosage: 1000 MILLIGRAM, BID
     Route: 065

REACTIONS (2)
  - Drug ineffective [Unknown]
  - Generalised tonic-clonic seizure [Unknown]
